FAERS Safety Report 4539622-6 (Version None)
Quarter: 2004Q4

REPORT INFORMATION
  Report Type: 
  Country: None (occurrence: None)
  Receive Date: 20041223
  Receipt Date: 20041210
  Transmission Date: 20050328
  Serious: No
  Sender: FDA-Public Use
  Company Number: 9482

PATIENT
  Age: 60 Year
  Sex: Female

DRUGS (5)
  1. AMIODARONE [Suspect]
     Indication: VENTRICULAR TACHYCARDIA
     Dosage: IV
     Route: 042
     Dates: start: 20041108, end: 20041108
  2. PERINDOPRIL [Concomitant]
  3. DIGOXIN [Concomitant]
  4. WARFARIN SODIUM [Concomitant]
  5. FLECAINIDE ACETATE [Concomitant]

REACTIONS (6)
  - EMBOLISM [None]
  - OEDEMA PERIPHERAL [None]
  - PERIPHERAL COLDNESS [None]
  - PULSE ABSENT [None]
  - PULSE PRESSURE DECREASED [None]
  - THROMBOSIS [None]
